FAERS Safety Report 5868649-7 (Version None)
Quarter: 2008Q3

REPORT INFORMATION
  Report Type: 
  Country: None (occurrence: None)
  Receive Date: 20080903
  Receipt Date: 20030706
  Transmission Date: 20090109
  Serious: Yes (Other)
  Sender: FDA-Public Use
  Company Number: US-BAYER-200830545NA

PATIENT
  Sex: Female

DRUGS (2)
  1. AVELOX [Suspect]
     Indication: SINUSITIS
     Dosage: UNIT DOSE: 400 MG
     Dates: start: 20030702
  2. AVELOX [Suspect]
     Dates: start: 20030608, end: 20030615

REACTIONS (13)
  - ANXIETY [None]
  - APHASIA [None]
  - CONVULSION [None]
  - DIARRHOEA [None]
  - DYSTONIA [None]
  - HEADACHE [None]
  - HYPERHIDROSIS [None]
  - INSOMNIA [None]
  - MENTAL IMPAIRMENT [None]
  - NASAL CONGESTION [None]
  - NAUSEA [None]
  - URTICARIA [None]
  - VOMITING [None]
